FAERS Safety Report 6611433-7 (Version None)
Quarter: 2010Q1

REPORT INFORMATION
  Report Type: 
  Country: None (occurrence: None)
  Receive Date: 20100222
  Receipt Date: 20100208
  Transmission Date: 20100710
  Serious: Yes (Hospitalization)
  Sender: FDA-Public Use
  Company Number: A-CH2010-33839

PATIENT
  Age: 72 Year
  Sex: Male
  Weight: 89 kg

DRUGS (3)
  1. TRACLEER [Suspect]
     Indication: PULMONARY HYPERTENSION
     Dosage: 52.5 MG, BID, ORAL
     Route: 048
     Dates: start: 20091001, end: 20091201
  2. SILDENAFIL CITRATE [Concomitant]
  3. CYCLOPHOSPHAMIDE [Concomitant]

REACTIONS (5)
  - ERYTHEMA [None]
  - FLUSHING [None]
  - INFECTION [None]
  - OEDEMA PERIPHERAL [None]
  - OFF LABEL USE [None]
